FAERS Safety Report 7278793-8 (Version None)
Quarter: 2011Q1

REPORT INFORMATION
  Report Type: 
  Country: None (occurrence: None)
  Receive Date: 20110207
  Receipt Date: 20110128
  Transmission Date: 20110831
  Serious: Yes (Other)
  Sender: FDA-Public Use
  Company Number: FR-BAXTER-2011BH002728

PATIENT

DRUGS (5)
  1. CYCLOPHOSPHAMIDE [Suspect]
     Dosage: DOSE UNIT:GRAMS PER METERS SQUARED
     Route: 042
  2. PREDNISONE [Concomitant]
     Indication: PRODUCT USED FOR UNKNOWN INDICATION
     Route: 048
  3. CYCLOPHOSPHAMIDE [Suspect]
     Indication: PRODUCT USED FOR UNKNOWN INDICATION
     Dosage: DOSE UNIT:GRAMS PER METERS SQUARED
     Route: 042
  4. CYCLOPHOSPHAMIDE [Suspect]
     Route: 048
  5. METHYLPREDNISOLONE [Concomitant]
     Indication: PRODUCT USED FOR UNKNOWN INDICATION
     Route: 042

REACTIONS (1)
  - SEPSIS [None]
